FAERS Safety Report 8854375 (Version 2)
Quarter: 2012Q4

REPORT INFORMATION
  Report Type: 
  Country: TW (occurrence: TW)
  Receive Date: 20121023
  Receipt Date: 20121106
  Transmission Date: 20130627
  Serious: Yes (Death)
  Sender: FDA-Public Use
  Company Number: TW-BAXTER-2012BAX020576

PATIENT
  Sex: Female

DRUGS (2)
  1. DIANEAL PD-2, PERITONEAL DIALYSIS SOLUTION WITH 4.25% DEXTROSE ^BAXTER [Suspect]
     Indication: AUTOMATED PERITONEAL DIALYSIS
     Route: 033
  2. BAXTER EXTRANEAL PERITONEAL DIALYSIS SOLUTION WITH 7.5% ICODEXTRIN [Suspect]
     Indication: AUTOMATED PERITONEAL DIALYSIS
     Route: 033

REACTIONS (2)
  - Cardiovascular disorder [Fatal]
  - Nutritional condition abnormal [Unknown]
